FAERS Safety Report 21657043 (Version 2)
Quarter: 2022Q4

REPORT INFORMATION
  Report Type: Spontaneous
  Country: FR (occurrence: FR)
  Receive Date: 20221129
  Receipt Date: 20221206
  Transmission Date: 20230113
  Serious: Yes (Hospitalization, Other)
  Sender: FDA-Public Use
  Company Number: FR-GSKCCFEMEA-Case-01617883_AE-64683

PATIENT

DRUGS (4)
  1. LAMICTAL [Suspect]
     Active Substance: LAMOTRIGINE
     Indication: Epilepsy
     Dosage: 100 MG
     Dates: start: 202206
  2. LAMICTAL [Suspect]
     Active Substance: LAMOTRIGINE
     Dosage: 75 MG
     Dates: start: 202206
  3. LAMICTAL [Suspect]
     Active Substance: LAMOTRIGINE
     Dosage: 50 MG
     Dates: start: 202206
  4. LEVOFLOXACIN [Suspect]
     Active Substance: LEVOFLOXACIN
     Indication: Product used for unknown indication
     Dosage: UNK

REACTIONS (6)
  - Pyelonephritis [Unknown]
  - Sepsis [Unknown]
  - Urticaria [Recovering/Resolving]
  - Dermatitis allergic [Unknown]
  - Skin irritation [Unknown]
  - Product administration interrupted [Unknown]
